FAERS Safety Report 13067197 (Version 1)
Quarter: 2016Q4

REPORT INFORMATION
  Report Type: Spontaneous
  Country: US (occurrence: US)
  Receive Date: 20161227
  Receipt Date: 20161227
  Transmission Date: 20170207
  Serious: Yes (Death, Other)
  Sender: FDA-Public Use
  Company Number: US-BRISTOL-MYERS SQUIBB COMPANY-BMS-2016-109373

PATIENT
  Sex: Female
  Weight: 95.24 kg

DRUGS (1)
  1. OPDIVO [Suspect]
     Active Substance: NIVOLUMAB
     Indication: RENAL NEOPLASM
     Dosage: 300 MG, UNK
     Route: 065

REACTIONS (1)
  - Death [Fatal]
